FAERS Safety Report 6216408-8 (Version None)
Quarter: 2009Q2

REPORT INFORMATION
  Report Type: 
  Country: None (occurrence: None)
  Receive Date: 20090605
  Receipt Date: 20090529
  Transmission Date: 20091009
  Serious: Yes (Hospitalization)
  Sender: FDA-Public Use
  Company Number: US-JNJFOC-20090600104

PATIENT
  Sex: Female
  Weight: 47.63 kg

DRUGS (9)
  1. FENTANYL TRANSDERMAL SYSTEM [Suspect]
     Route: 062
  2. FENTANYL TRANSDERMAL SYSTEM [Suspect]
     Indication: PAIN
     Route: 062
  3. FENTANYL TRANSDERMAL SYSTEM [Suspect]
     Indication: PAIN
     Route: 062
  4. PHENOBARBITAL TAB [Concomitant]
     Indication: GRAND MAL CONVULSION
     Route: 048
  5. HYDROCODONE BITARTRATE [Concomitant]
     Route: 048
  6. HYDROCODONE BITARTRATE [Concomitant]
     Indication: BREAKTHROUGH PAIN
     Route: 048
  7. CYMBALTA [Concomitant]
     Indication: DEPRESSION
     Route: 048
  8. KLONOPIN [Concomitant]
     Indication: ANXIETY
     Route: 048
  9. AMBIEN CR [Concomitant]
     Indication: INSOMNIA
     Route: 048

REACTIONS (12)
  - AGITATION [None]
  - ARTHRALGIA [None]
  - DIZZINESS [None]
  - HYPERHIDROSIS [None]
  - INFECTION [None]
  - JOINT INJURY [None]
  - MENISCUS LESION [None]
  - NAUSEA [None]
  - PRODUCT QUALITY ISSUE [None]
  - SOMNOLENCE [None]
  - STAPHYLOCOCCAL INFECTION [None]
  - WITHDRAWAL SYNDROME [None]
